FAERS Safety Report 9988948 (Version 2)
Quarter: 2014Q1

REPORT INFORMATION
  Report Type: Report from Study
  Country: US (occurrence: US)
  Receive Date: 20140310
  Receipt Date: 20140310
  Transmission Date: 20141002
  Serious: No
  Sender: FDA-Public Use
  Company Number: US-ABBVIE-12P-163-1019589-00

PATIENT
  Age: 37 Year
  Sex: Female
  Weight: 88.53 kg

DRUGS (12)
  1. HUMIRA [Suspect]
     Indication: PSORIATIC ARTHROPATHY
     Dates: start: 20120926
  2. TOPROL [Concomitant]
     Indication: CARDIOMYOPATHY
  3. TOPROL [Concomitant]
     Indication: HYPERTENSION
  4. LISINOPRIL [Concomitant]
     Indication: CARDIOMYOPATHY
  5. LISINOPRIL [Concomitant]
     Indication: HYPERTENSION
  6. FOLIC ACID [Concomitant]
     Indication: PSORIATIC ARTHROPATHY
  7. FOLIC ACID [Concomitant]
     Indication: VITAMIN SUPPLEMENTATION
  8. SERTRALINE [Concomitant]
     Indication: DEPRESSION
  9. MELOXICAM [Concomitant]
     Indication: PAIN
  10. MELOXICAM [Concomitant]
     Indication: PSORIATIC ARTHROPATHY
  11. AMBIEN [Concomitant]
     Indication: SLEEP DISORDER
  12. AMBIEN [Concomitant]
     Indication: INSOMNIA

REACTIONS (7)
  - Neck pain [Not Recovered/Not Resolved]
  - Drug ineffective [Unknown]
  - Psoriasis [Not Recovered/Not Resolved]
  - Psoriasis [Unknown]
  - Psoriasis [Not Recovered/Not Resolved]
  - Back pain [Not Recovered/Not Resolved]
  - Arthralgia [Not Recovered/Not Resolved]
